FAERS Safety Report 19649317 (Version 2)
Quarter: 2021Q3

REPORT INFORMATION
  Report Type: Spontaneous
  Country: US (occurrence: US)
  Receive Date: 20210803
  Receipt Date: 20210820
  Transmission Date: 20211014
  Serious: No
  Sender: FDA-Public Use
  Company Number: US-JNJFOC-20210757880

PATIENT
  Age: 27 Year
  Sex: Female
  Weight: 69.31 kg

DRUGS (1)
  1. REMICADE [Suspect]
     Active Substance: INFLIXIMAB
     Indication: CROHN^S DISEASE
     Route: 042

REACTIONS (3)
  - Infusion site extravasation [Unknown]
  - Product dose omission issue [Unknown]
  - Tenderness [Unknown]

NARRATIVE: CASE EVENT DATE: 20210517
